FAERS Safety Report 11282555 (Version 1)
Quarter: 2015Q3

REPORT INFORMATION
  Report Type: Spontaneous
  Country: US (occurrence: None)
  Receive Date: 20150716
  Receipt Date: 20150716
  Transmission Date: 20151125
  Serious: Yes (Death, Hospitalization, Other)
  Sender: FDA-Public Use
  Company Number: INS201507-000290

PATIENT
  Age: 62 Year
  Sex: Male
  Weight: 78.47 kg

DRUGS (10)
  1. FENTANYL PATCH (FENTANYL) [Concomitant]
  2. SPIRIVA INHALER (TIOTROPIUM BROMIDE) [Concomitant]
  3. TESSALON (BENZONATATE) [Concomitant]
  4. VENTOLIN INHALER (ALBUTEROL) [Concomitant]
  5. LOSARTAN HCTZ (LOSARTAN, HYDROCHLORTHIAZIDE) [Concomitant]
  6. MOBIC [Concomitant]
     Active Substance: MELOXICAM
  7. CIMEX (CEFUROXIME) [Concomitant]
  8. OMEPRAZOLE. [Concomitant]
     Active Substance: OMEPRAZOLE
  9. SUBSYS [Suspect]
     Active Substance: FENTANYL
     Indication: BREAKTHROUGH PAIN
     Dosage: EVERY 6-8 HOURS
     Route: 060
  10. KLONOPIN [Concomitant]
     Active Substance: CLONAZEPAM

REACTIONS (4)
  - Prostatic specific antigen increased [None]
  - Myocardial infarction [None]
  - Cardiac arrest [None]
  - Haemoptysis [None]

NARRATIVE: CASE EVENT DATE: 20150629
